FAERS Safety Report 10675149 (Version 1)
Quarter: 2014Q4

REPORT INFORMATION
  Report Type: Report from Study
  Country: US (occurrence: US)
  Receive Date: 20141224
  Receipt Date: 20141224
  Transmission Date: 20150529
  Serious: Yes (Hospitalization, Other)
  Sender: FDA-Public Use
  Company Number: US-GLAXOSMITHKLINE-US2014040357

PATIENT
  Age: 74 Year
  Sex: Male
  Weight: 131.2 kg

DRUGS (14)
  1. BLINDED PAZOPANIB [Suspect]
     Active Substance: PAZOPANIB
     Indication: RENAL CELL CARCINOMA
     Dosage: 800 MG, QD
     Route: 048
     Dates: start: 20100408
  2. BLINDED PAZOPANIB [Suspect]
     Active Substance: PAZOPANIB
     Indication: RENAL CELL CARCINOMA
     Dosage: 800 MG, QD
     Route: 048
     Dates: start: 20100408
  3. BLINDED SUNITINIB MALATE [Suspect]
     Active Substance: SUNITINIB MALATE
     Indication: RENAL CELL CARCINOMA
     Dosage: 800 MG, QD
     Route: 048
     Dates: start: 20100408
  4. BLINDED PAZOPANIB [Suspect]
     Active Substance: PAZOPANIB
     Dosage: 600 UNK, UNK
     Route: 048
     Dates: start: 20130530
  5. BLINDED SUNITINIB MALATE [Suspect]
     Active Substance: SUNITINIB MALATE
     Indication: RENAL CELL CARCINOMA
     Dosage: 800 MG, QD
     Route: 048
     Dates: start: 20100408
  6. BLINDED NO THERAPY [Suspect]
     Active Substance: UNSPECIFIED INGREDIENT
     Dosage: 600 UNK, UNK
     Route: 048
     Dates: start: 20130530
  7. BLINDED PAZOPANIB [Suspect]
     Active Substance: PAZOPANIB
     Dosage: 600 UNK, UNK
     Route: 048
     Dates: start: 20130530
  8. BLINDED SUNITINIB MALATE [Suspect]
     Active Substance: SUNITINIB MALATE
     Dosage: 600 UNK, UNK
     Route: 048
     Dates: start: 20130530
  9. BLINDED PAZOPANIB [Suspect]
     Active Substance: PAZOPANIB
     Indication: RENAL CELL CARCINOMA
     Dosage: 800 MG, QD
     Route: 048
     Dates: start: 20100408
  10. BLINDED SUNITINIB MALATE [Suspect]
     Active Substance: SUNITINIB MALATE
     Dosage: 600 UNK, UNK
     Route: 048
     Dates: start: 20130530
  11. BLINDED SUNITINIB MALATE [Suspect]
     Active Substance: SUNITINIB MALATE
     Dosage: 600 UNK, UNK
     Route: 048
     Dates: start: 20130530
  12. BLINDED NO THERAPY [Suspect]
     Active Substance: UNSPECIFIED INGREDIENT
     Indication: RENAL CELL CARCINOMA
     Dosage: 800 MG, QD
     Route: 048
     Dates: start: 20100408
  13. BLINDED SUNITINIB MALATE [Suspect]
     Active Substance: SUNITINIB MALATE
     Indication: RENAL CELL CARCINOMA
     Dosage: 800 MG, QD
     Route: 048
     Dates: start: 20100408
  14. BLINDED PAZOPANIB [Suspect]
     Active Substance: PAZOPANIB
     Dosage: 600 UNK, UNK
     Route: 048
     Dates: start: 20130530

REACTIONS (1)
  - Acute myocardial infarction [Recovered/Resolved]

NARRATIVE: CASE EVENT DATE: 20140919
